FAERS Safety Report 7278641-6 (Version None)
Quarter: 2011Q1

REPORT INFORMATION
  Report Type: 
  Country: None (occurrence: None)
  Receive Date: 20110207
  Receipt Date: 20110202
  Transmission Date: 20110831
  Serious: No
  Sender: FDA-Public Use
  Company Number: US-PFIZER INC-2011024636

PATIENT
  Sex: Female
  Weight: 63.5 kg

DRUGS (1)
  1. PRISTIQ [Suspect]
     Indication: DEPRESSED MOOD
     Dosage: 100 MG DAILY
     Dates: start: 20100101, end: 20110128

REACTIONS (1)
  - DIZZINESS [None]
